FAERS Safety Report 23983735 (Version 1)
Quarter: 2024Q2

REPORT INFORMATION
  Report Type: Spontaneous
  Country: NL (occurrence: NL)
  Receive Date: 20240618
  Receipt Date: 20240618
  Transmission Date: 20240716
  Serious: Yes (Life-Threatening, Hospitalization)
  Sender: FDA-Public Use
  Company Number: None

PATIENT
  Age: 68 Year
  Sex: Male
  Weight: 88 kg

DRUGS (18)
  1. COTRIMOXAZOLE [Suspect]
     Active Substance: SULFAMETHOXAZOLE\TRIMETHOPRIM
     Indication: Prophylaxis
     Dosage: 1 PIECE ONCE A DAY??480 TABLET 80/400MG / BRAND NAME NOT SPECIFIED
     Route: 065
     Dates: start: 20240304, end: 20240412
  2. LENALIDOMIDE [Suspect]
     Active Substance: LENALIDOMIDE
     Indication: Plasma cell myeloma
     Dosage: 1 PIECE ONCE A DAY??/ BRAND NAME NOT SPECIFIED
     Route: 065
     Dates: start: 20240304, end: 20240402
  3. DEXAMETHASONE [Concomitant]
     Active Substance: DEXAMETHASONE
     Indication: Product used for unknown indication
     Dosage: TABLET, 20 MG (MILLIGRAM)?/ BRAND NAME NOT SPECIFIED
     Route: 065
  4. AMLODIPINE [Concomitant]
     Active Substance: AMLODIPINE BESYLATE
     Indication: Product used for unknown indication
     Dosage: TABLET, 5 MG (MILLIGRAM)? / BRAND NAME NOT SPECIFIED
     Route: 065
  5. ACETAMINOPHEN [Concomitant]
     Active Substance: ACETAMINOPHEN
     Indication: Product used for unknown indication
     Dosage: TABLET, 1000 MG (MILLIGRAM)?? / BRAND NAME NOT SPECIFIED
     Route: 065
  6. CLEMASTINE [Concomitant]
     Active Substance: CLEMASTINE
     Indication: Product used for unknown indication
     Dosage: TABLET, 1 MG (MILLIGRAM)? / BRAND NAME NOT SPECIFIED
     Route: 065
  7. NADROPARIN [Concomitant]
     Active Substance: NADROPARIN
     Indication: Product used for unknown indication
     Dosage: INJECTION FLUID, 9500 IU/ML (UNITS PER MILLILITER)?INJVLST 9500IE/ML / BRAND NAME NOT SPECIFIED
     Route: 065
  8. ALLOPURINOL [Suspect]
     Active Substance: ALLOPURINOL
     Indication: Plasma cell myeloma
     Dosage: 1 PIECE ONCE A DAY? / BRAND NAME NOT SPECIFIED
     Route: 065
     Dates: start: 20240308
  9. VALACYCLOVIR HYDROCHLORIDE [Concomitant]
     Active Substance: VALACYCLOVIR HYDROCHLORIDE
     Indication: Product used for unknown indication
     Dosage: TABLET, 500 MG (MILLIGRAM)? / BRAND NAME NOT SPECIFIED
     Route: 065
  10. LEVOTHYROXINE (SODIUM) [Concomitant]
     Indication: Product used for unknown indication
     Dosage: TABLET, 75 ?G (MICROGRAM)? / BRAND NAME NOT SPECIFIED
     Route: 065
  11. DARATUMUMAB [Concomitant]
     Active Substance: DARATUMUMAB
     Indication: Product used for unknown indication
     Dosage: DOSAGE: 120 MG/ML INJECTION FLUID, 120 MG/ML (MILLIGRAM PER MILLILITER)? INJVLST / BRAND NAME NOT...
     Route: 065
  12. MONTELUKAST [Concomitant]
     Active Substance: MONTELUKAST SODIUM
     Indication: Product used for unknown indication
     Dosage: COATED TABLET, 10 MG (MILLIGRAM)? / BRAND NAME NOT SPECIFIED
     Route: 065
  13. BISOPROLOL [Concomitant]
     Active Substance: BISOPROLOL\BISOPROLOL FUMARATE
     Indication: Product used for unknown indication
     Dosage: TABLET, 1.25 MG (MILLIGRAM)?/ BRAND NAME NOT SPECIFIED
     Route: 065
  14. LEVOFLOXACIN [Suspect]
     Active Substance: LEVOFLOXACIN
     Indication: Prophylaxis
     Dosage: 1 PIECE ONCE A DAY? / BRAND NAME NOT SPECIFIED
     Route: 065
     Dates: start: 20240304, end: 20240413
  15. SIMVASTATIN [Concomitant]
     Active Substance: SIMVASTATIN
     Indication: Product used for unknown indication
     Dosage: FILM-COATED TABLET, 40 MG (MILLIGRAM)?/ BRAND NAME NOT SPECIFIED
     Route: 065
  16. MORPHINE [Concomitant]
     Active Substance: MORPHINE
     Indication: Product used for unknown indication
     Dosage: TABLET, 10 MG (MILLIGRAM)? (SULFATE) / BRAND NAME NOT SPECIFIED
     Route: 065
  17. LEVOCETIRIZINE [Concomitant]
     Active Substance: LEVOCETIRIZINE
     Indication: Product used for unknown indication
     Dosage: FILM-COATED TABLET, 5 MG (MILLIGRAM)? / BRAND NAME NOT SPECIFIED
     Route: 065
  18. BORTEZOMIB [Suspect]
     Active Substance: BORTEZOMIB
     Indication: Plasma cell myeloma
     Dosage: 3MG ONCE DAY 1, 4, 8 OF TREATMENT CYCLE?/ BRAND NAME NOT SPECIFIED
     Route: 065
     Dates: start: 20240304, end: 20240402

REACTIONS (1)
  - Stevens-Johnson syndrome [Recovering/Resolving]

NARRATIVE: CASE EVENT DATE: 20240412
